FAERS Safety Report 7334588-8 (Version None)
Quarter: 2011Q1

REPORT INFORMATION
  Report Type: 
  Country: None (occurrence: None)
  Receive Date: 20110307
  Receipt Date: 20101107
  Transmission Date: 20110831
  Serious: No
  Sender: FDA-Public Use
  Company Number: A0891801A

PATIENT
  Sex: Male

DRUGS (3)
  1. SINGULAIR [Suspect]
     Dates: start: 20090701
  2. REQUIP [Suspect]
     Dosage: 16MG PER DAY
     Dates: start: 20090301
  3. AZILECT [Suspect]
     Dates: start: 20090701

REACTIONS (2)
  - DRUG INTERACTION [None]
  - OEDEMA PERIPHERAL [None]
